FAERS Safety Report 25686646 (Version 1)
Quarter: 2025Q3

REPORT INFORMATION
  Report Type: Spontaneous
  Country: CN (occurrence: CN)
  Receive Date: 20250816
  Receipt Date: 20250816
  Transmission Date: 20251020
  Serious: Yes (Death, Other)
  Sender: SANOFI AVENTIS
  Company Number: CN-DialogSolutions-SAAVPROD-PI810166-C1

PATIENT
  Age: 69 Year
  Sex: Male

DRUGS (3)
  1. DOCETAXEL [Suspect]
     Active Substance: DOCETAXEL
     Indication: Lung squamous cell carcinoma stage III
  2. CARBOPLATIN [Suspect]
     Active Substance: CARBOPLATIN
     Indication: Lung squamous cell carcinoma stage III
  3. TORIPALIMAB [Suspect]
     Active Substance: TORIPALIMAB
     Indication: Lung squamous cell carcinoma stage III
     Dosage: 240 MG, Q3W, ON DAY 1

REACTIONS (8)
  - Tumour hyperprogression [Fatal]
  - Intestinal metastasis [Fatal]
  - Haematemesis [Fatal]
  - Retroperitoneal mass [Fatal]
  - Melaena [Fatal]
  - Vomiting [Fatal]
  - Upper gastrointestinal haemorrhage [Fatal]
  - Cachexia [Fatal]
